FAERS Safety Report 14571872 (Version 1)
Quarter: 2018Q1

REPORT INFORMATION
  Report Type: Spontaneous
  Country: US (occurrence: US)
  Receive Date: 20180223
  Receipt Date: 20180223
  Transmission Date: 20180509
  Serious: No
  Sender: FDA-Public Use
  Company Number: None

PATIENT
  Age: 41 Year
  Sex: Female

DRUGS (1)
  1. ENBREL [Suspect]
     Active Substance: ETANERCEPT

REACTIONS (5)
  - Skin disorder [None]
  - Rash [None]
  - Impaired work ability [None]
  - Rash generalised [None]
  - Fall [None]

NARRATIVE: CASE EVENT DATE: 20170101
